FAERS Safety Report 5018580-4 (Version None)
Quarter: 2006Q2

REPORT INFORMATION
  Report Type: 
  Country: None (occurrence: None)
  Receive Date: 20060414
  Receipt Date: 20060109
  Transmission Date: 20061013
  Serious: No
  Sender: FDA-Public Use
  Company Number: 2006SP000127

PATIENT
  Age: 85 Year
  Sex: Female

DRUGS (1)
  1. LUNESTA [Suspect]
     Dosage: 4 MG;HS;ORAL
     Route: 048
     Dates: start: 20051209

REACTIONS (3)
  - DRUG INEFFECTIVE [None]
  - DYSGEUSIA [None]
  - MIDDLE INSOMNIA [None]
